FAERS Safety Report 5746886-X (Version None)
Quarter: 2008Q2

REPORT INFORMATION
  Report Type: 
  Country: None (occurrence: None)
  Receive Date: 20080522
  Receipt Date: 20080521
  Transmission Date: 20081010
  Serious: Yes (Other)
  Sender: FDA-Public Use
  Company Number: GB-WYE-G01569008

PATIENT

DRUGS (1)
  1. TAZOCIN [Suspect]
     Dosage: UNKNOWN

REACTIONS (1)
  - MYOCARDITIS [None]
